FAERS Safety Report 4526123-4 (Version None)
Quarter: 2004Q4

REPORT INFORMATION
  Report Type: 
  Country: None (occurrence: None)
  Receive Date: 20041213
  Receipt Date: 20041213
  Transmission Date: 20050328
  Serious: Yes (Other)
  Sender: FDA-Public Use
  Company Number: None

PATIENT
  Age: 28 Year
  Sex: Female
  Weight: 52.1637 kg

DRUGS (2)
  1. PAXIL CR [Suspect]
     Dosage: 25 MG   DAY   ORAL
     Route: 048
     Dates: start: 20041115, end: 20041216
  2. PAXIL CR [Suspect]

REACTIONS (6)
  - ABNORMAL DREAMS [None]
  - AFFECT LABILITY [None]
  - DRUG WITHDRAWAL SYNDROME [None]
  - EMOTIONAL DISTRESS [None]
  - IMPAIRED WORK ABILITY [None]
  - NIGHT SWEATS [None]
